FAERS Safety Report 5464965-1 (Version None)
Quarter: 2007Q3

REPORT INFORMATION
  Report Type: 
  Country: None (occurrence: None)
  Receive Date: 20070921
  Receipt Date: 20070914
  Transmission Date: 20080115
  Serious: Yes (Other)
  Sender: FDA-Public Use
  Company Number: US-PFIZER INC-2007077360

PATIENT
  Sex: Female
  Weight: 65.909 kg

DRUGS (2)
  1. ZOLOFT [Suspect]
     Indication: SCHIZOPHRENIA, PARANOID TYPE
  2. ABILIFY [Concomitant]

REACTIONS (2)
  - CLAVICLE FRACTURE [None]
  - FALL [None]
